FAERS Safety Report 4311024-7 (Version None)
Quarter: 2004Q1

REPORT INFORMATION
  Report Type: 
  Country: None (occurrence: None)
  Receive Date: 20040302
  Receipt Date: 20040302
  Transmission Date: 20041129
  Serious: Yes (Hospitalization)
  Sender: FDA-Public Use
  Company Number: None

PATIENT
  Age: 44 Year
  Sex: Female
  Weight: 68.9 kg

DRUGS (11)
  1. ONTAK [Suspect]
     Indication: GRAFT VERSUS HOST DISEASE
     Dosage: 600 MCG DAILY X 5 IV
     Route: 042
     Dates: start: 20040223, end: 20040226
  2. ARANESP [Concomitant]
  3. PROGRAF [Concomitant]
  4. ACYCLOVIR [Concomitant]
  5. PRILOSEC [Concomitant]
  6. DIFLUCAN [Concomitant]
  7. M.V.I. [Concomitant]
  8. DAPSONE [Concomitant]
  9. REMERON [Concomitant]
  10. MEDROL [Concomitant]
  11. LASIX [Concomitant]

REACTIONS (5)
  - BONE PAIN [None]
  - DYSPNOEA [None]
  - MYALGIA [None]
  - OEDEMA PERIPHERAL [None]
  - SWELLING FACE [None]
